FAERS Safety Report 5586058-5 (Version None)
Quarter: 2007Q4

REPORT INFORMATION
  Report Type: 
  Country: None (occurrence: None)
  Receive Date: 20071205
  Receipt Date: 20070920
  Transmission Date: 20080405
  Serious: Yes (Hospitalization)
  Sender: FDA-Public Use
  Company Number: HQWYE299025SEP07

PATIENT
  Age: 61 Year
  Sex: Female

DRUGS (2)
  1. EFFEXOR XR [Suspect]
     Dosage: 1200 MG 1X PER 1 DAY, ORAL
     Route: 048
  2. XANAX [Concomitant]

REACTIONS (1)
  - SOMNOLENCE [None]
